FAERS Safety Report 7155960-5 (Version None)
Quarter: 2010Q4

REPORT INFORMATION
  Report Type: 
  Country: None (occurrence: None)
  Receive Date: 20101214
  Receipt Date: 20101202
  Transmission Date: 20110411
  Serious: Yes (Other)
  Sender: FDA-Public Use
  Company Number: PHHY2010AU49868

PATIENT
  Sex: Male

DRUGS (1)
  1. ACLASTA [Suspect]
     Indication: STRESS FRACTURE
     Dosage: 5 MG/100 ML
     Dates: start: 20100720

REACTIONS (14)
  - ABASIA [None]
  - ARTHRALGIA [None]
  - BLOOD CREATININE INCREASED [None]
  - BLOOD SODIUM DECREASED [None]
  - DECREASED APPETITE [None]
  - DIARRHOEA [None]
  - FACIAL PAIN [None]
  - HAEMATOCRIT DECREASED [None]
  - JOINT SWELLING [None]
  - LYMPHOCYTE COUNT DECREASED [None]
  - MEAN CELL HAEMOGLOBIN CONCENTRATION INCREASED [None]
  - MYALGIA [None]
  - PAIN [None]
  - RED BLOOD CELL COUNT DECREASED [None]
